FAERS Safety Report 10619303 (Version 2)
Quarter: 2014Q4

REPORT INFORMATION
  Report Type: Spontaneous
  Country: US (occurrence: None)
  Receive Date: 20141126
  Receipt Date: 20141210
  Transmission Date: 20150529
  Serious: Yes (Hospitalization)
  Sender: FDA-Public Use
  Company Number: 2014-US-015269

PATIENT
  Age: 60 Year
  Sex: Female
  Weight: 56.7 kg

DRUGS (6)
  1. XYREM [Suspect]
     Active Substance: SODIUM OXYBATE
     Indication: NARCOLEPSY
     Dosage: 2.25 G, BID, ORAL?
     Route: 048
     Dates: start: 200810, end: 2009
  2. FLUDROCORTISONE (FLUDROCORTISONE) [Concomitant]
  3. INDAPAMIDE (INDAPAMIDE) [Concomitant]
     Active Substance: INDAPAMIDE
  4. XYREM [Suspect]
     Active Substance: SODIUM OXYBATE
     Indication: CATAPLEXY
     Dosage: 2.25 G, BID, ORAL?
     Route: 048
     Dates: start: 200810, end: 2009
  5. RITALIN (METHYLPHENIDATE HYDROCHLORIDE) [Concomitant]
     Active Substance: METHYLPHENIDATE HYDROCHLORIDE
  6. HYDROCORTISONE (HYDROCORTISONE) [Concomitant]
     Active Substance: HYDROCORTISONE

REACTIONS (5)
  - Abdominal pain upper [None]
  - Night sweats [None]
  - Dehydration [None]
  - Lyme disease [None]
  - Influenza [None]

NARRATIVE: CASE EVENT DATE: 201404
